FAERS Safety Report 6314755-2 (Version None)
Quarter: 2009Q3

REPORT INFORMATION
  Report Type: 
  Country: None (occurrence: None)
  Receive Date: 20090817
  Receipt Date: 20090805
  Transmission Date: 20100115
  Serious: Yes (Hospitalization)
  Sender: FDA-Public Use
  Company Number: 2009SP018288

PATIENT
  Age: 48 Year
  Sex: Female

DRUGS (4)
  1. CHLORPHENIRAMINE MALEATE [Suspect]
     Indication: BRONCHITIS
  2. CLINDAMYCIN HCL [Suspect]
     Indication: BRONCHITIS
  3. PARACETAMOL [Concomitant]
  4. BETAMETHASONE [Concomitant]

REACTIONS (4)
  - CHOLESTASIS [None]
  - HEPATITIS [None]
  - MIGRAINE [None]
  - STEVENS-JOHNSON SYNDROME [None]
